FAERS Safety Report 9184537 (Version 1)
Quarter: 2012Q4

REPORT INFORMATION
  Report Type: 
  Country: US (occurrence: US)
  Receive Date: 20121031
  Receipt Date: 20121031
  Transmission Date: 20130627
  Serious: Yes (Other)
  Sender: FDA-Public Use
  Company Number: US-BAYER-2012-113607

PATIENT
  Age: 30 Year
  Sex: Female

DRUGS (5)
  1. YAZ [Suspect]
  2. PROPOXYPHENE NAPSYLATE W/ACETAMINOPHENE [Concomitant]
     Dosage: 650 mg, UNK
  3. IBUPROFEN [Concomitant]
     Dosage: 800 mg, UNK
  4. ALPRAZOLAM [Concomitant]
     Dosage: 0.5 mg, UNK
  5. PERCOCET [Concomitant]
     Dosage: 5-325mg

REACTIONS (1)
  - Deep vein thrombosis [None]
